FAERS Safety Report 10258199 (Version 1)
Quarter: 2014Q2

REPORT INFORMATION
  Report Type: Spontaneous
  Country: US (occurrence: None)
  Receive Date: 20140623
  Receipt Date: 20140623
  Transmission Date: 20141212
  Serious: Yes (Other)
  Sender: FDA-Public Use
  Company Number: UNT-2014-000221

PATIENT
  Age: 79 Year
  Sex: Female
  Weight: 48.5 kg

DRUGS (2)
  1. TYVASO (TREPROSTINIL SODIUM) INHALATION GAS, 0.6MG/ML [Suspect]
     Indication: COR PULMONALE CHRONIC
     Route: 055
     Dates: start: 20131230
  2. REMODULIN (TREPROSTINIL SODIUM) INJECTION, 2.5MG/ML [Suspect]
     Indication: COR PULMONALE CHRONIC
     Dosage: 0.002 UG/KG/MIN, CONTINUING
     Route: 058
     Dates: start: 20140416

REACTIONS (3)
  - Infusion site infection [None]
  - Infusion site pain [None]
  - Pyrexia [None]
